FAERS Safety Report 18010682 (Version 2)
Quarter: 2020Q3

REPORT INFORMATION
  Report Type: Report from Study
  Country: GB (occurrence: GB)
  Receive Date: 20200710
  Receipt Date: 20200807
  Transmission Date: 20201103
  Serious: Yes (Hospitalization, Other)
  Sender: FDA-Public Use
  Company Number: NVSC2020GB188377

PATIENT

DRUGS (15)
  1. BLINDED ACZ885 [Suspect]
     Active Substance: CANAKINUMAB
     Indication: HEPATITIS ALCOHOLIC
     Dosage: CODE NOT BROKEN
     Route: 042
     Dates: start: 20190917, end: 20190917
  2. THIAMINE. [Concomitant]
     Active Substance: THIAMINE
     Indication: PRODUCT USED FOR UNKNOWN INDICATION
     Dosage: 100 MG, TID
     Route: 048
     Dates: start: 20190909, end: 20190918
  3. ENSURE [Concomitant]
     Active Substance: AMINO ACIDS\DEXTROSE\ELECTROLYTES NOS\SOYBEAN OIL\VITAMINS
     Indication: PRODUCT USED FOR UNKNOWN INDICATION
     Dosage: 220 ML, TID
     Route: 048
     Dates: start: 20190909
  4. MAGNASPARTATE [Concomitant]
     Indication: PRODUCT USED FOR UNKNOWN INDICATION
     Dosage: 10 NMOL, TID
     Route: 048
     Dates: start: 20190914
  5. BLINDED NO TREATMENT RECEIVED [Suspect]
     Active Substance: INVESTIGATIONAL PRODUCT
     Indication: HEPATITIS ALCOHOLIC
     Dosage: CODE NOT BROKEN
     Route: 042
     Dates: start: 20190917, end: 20190917
  6. FORCEVAL [Concomitant]
     Active Substance: FOLIC ACID\IRON\MINERALS\VITAMINS
     Indication: PRODUCT USED FOR UNKNOWN INDICATION
     Dosage: 1 TABLET QD
     Route: 048
     Dates: start: 20190909, end: 20190918
  7. VITAMIN B [Concomitant]
     Active Substance: VITAMIN B
     Indication: PRODUCT USED FOR UNKNOWN INDICATION
     Dosage: 1 TABLET TID
     Route: 048
     Dates: start: 20190909, end: 20190918
  8. FOLIC ACID. [Concomitant]
     Active Substance: FOLIC ACID
     Indication: PRODUCT USED FOR UNKNOWN INDICATION
     Dosage: 5 MG, QD
     Route: 048
     Dates: start: 20190911
  9. PHOSPHATE SANDOZ [Concomitant]
     Active Substance: SODIUM PHOSPHATE, MONOBASIC, ANHYDROUS
     Indication: PRODUCT USED FOR UNKNOWN INDICATION
     Dosage: TABLET, TID
     Route: 048
     Dates: start: 20190913
  10. COTRIMOXAZOLE [Concomitant]
     Active Substance: SULFAMETHOXAZOLE\TRIMETHOPRIM
     Indication: PRODUCT USED FOR UNKNOWN INDICATION
     Dosage: 480 MG, QD
     Route: 048
     Dates: start: 20190908, end: 20190919
  11. CHLORDIAZEPOXIDE. [Concomitant]
     Active Substance: CHLORDIAZEPOXIDE
     Indication: PRODUCT USED FOR UNKNOWN INDICATION
     Dosage: PRN
     Route: 048
     Dates: start: 20190908
  12. BLINDED ACZ885 [Suspect]
     Active Substance: CANAKINUMAB
     Indication: HEPATITIS ALCOHOLIC
     Dosage: CODE NOT BROKEN
     Route: 042
     Dates: start: 20190917, end: 20190917
  13. PLACEBO [Suspect]
     Active Substance: UNSPECIFIED INGREDIENT
     Indication: HEPATITIS ALCOHOLIC
     Dosage: CODE NOT BROKEN
     Route: 042
     Dates: start: 20190917, end: 20190917
  14. NYSTATIN. [Concomitant]
     Active Substance: NYSTATIN
     Indication: PRODUCT USED FOR UNKNOWN INDICATION
     Dosage: 100,000 IN 1 ML, QID
     Route: 048
     Dates: start: 20190906
  15. ENOXAPARIN [Concomitant]
     Active Substance: ENOXAPARIN
     Indication: PRODUCT USED FOR UNKNOWN INDICATION
     Dosage: 40 MG, QD
     Route: 058
     Dates: start: 20190907

REACTIONS (2)
  - Pneumonia [Recovered/Resolved with Sequelae]
  - Peritonitis bacterial [Recovered/Resolved]

NARRATIVE: CASE EVENT DATE: 20190918
